FAERS Safety Report 14741145 (Version 3)
Quarter: 2018Q2

REPORT INFORMATION
  Report Type: Spontaneous
  Country: US (occurrence: US)
  Receive Date: 20180410
  Receipt Date: 20180427
  Transmission Date: 20180711
  Serious: Yes (Other)
  Sender: FDA-Public Use
  Company Number: US-DRREDDYS-USA/USA/18/0097406

PATIENT
  Age: 17 Year
  Sex: Female

DRUGS (5)
  1. SIROLIMUS. [Interacting]
     Active Substance: SIROLIMUS
     Dosage: ADJUSTED BASED ON BLOOD CONCENTRATIONS WITH HER TARGET SET AT 8-12 MICROG/L
     Route: 065
  2. SIROLIMUS. [Interacting]
     Active Substance: SIROLIMUS
     Dosage: ON DAY-1; LOADING DOSE
     Route: 065
  3. SIROLIMUS. [Interacting]
     Active Substance: SIROLIMUS
     Route: 065
  4. FLUCONAZOLE. [Interacting]
     Active Substance: FLUCONAZOLE
     Indication: BONE MARROW TRANSPLANT
     Dosage: 200 MG (3 MG/KG/DOSE) ONCE DAILY WAS STARTED ON DAY-2 AND DISCONTINUED ON DAY +194
     Route: 065
  5. SIROLIMUS. [Suspect]
     Active Substance: SIROLIMUS
     Indication: BONE MARROW TRANSPLANT
     Dosage: REDUCED TO 2 MG DAILY ON DAY 0
     Route: 065

REACTIONS (2)
  - Drug level increased [Recovered/Resolved]
  - Drug interaction [Unknown]
